FAERS Safety Report 6335944-7 (Version None)
Quarter: 2009Q3

REPORT INFORMATION
  Report Type: 
  Country: None (occurrence: None)
  Receive Date: 20090831
  Receipt Date: 20090831
  Transmission Date: 20100115
  Serious: Yes (Other)
  Sender: FDA-Public Use
  Company Number: None

PATIENT
  Sex: Male
  Weight: 92.9874 kg

DRUGS (2)
  1. CHANTIX [Suspect]
     Indication: SMOKING CESSATION THERAPY
     Dosage: 1 MG. 2 X DAILY ORAL
     Route: 048
     Dates: start: 20090301, end: 20090401
  2. CHANTIX [Suspect]
     Indication: SMOKING CESSATION THERAPY
     Dosage: 1 MG. 2 X DAILY ORAL
     Route: 048
     Dates: start: 20090501, end: 20090528

REACTIONS (2)
  - DRUG INEFFECTIVE [None]
  - REITER'S SYNDROME [None]
